FAERS Safety Report 7076510-8 (Version None)
Quarter: 2010Q4

REPORT INFORMATION
  Report Type: 
  Country: None (occurrence: None)
  Receive Date: 20101101
  Receipt Date: 20101021
  Transmission Date: 20110411
  Serious: Yes (Hospitalization)
  Sender: FDA-Public Use
  Company Number: US-ELI_LILLY_AND_COMPANY-US201008001962

PATIENT
  Sex: Male

DRUGS (14)
  1. HUMALOG [Suspect]
     Indication: TYPE 1 DIABETES MELLITUS
     Dosage: 6 U, EACH MORNING
     Dates: start: 20070101
  2. HUMALOG [Suspect]
     Dosage: 11 U, DAILY (1/D)
     Dates: start: 20070101
  3. HUMALOG [Suspect]
     Dosage: 13 U, EACH EVENING
     Dates: start: 20070101
  4. HUMALOG [Suspect]
     Dates: start: 20070101
  5. LANTUS [Concomitant]
     Dosage: 34 U, EACH EVENING
  6. LISINOPRIL [Concomitant]
     Dosage: 20 MG, DAILY (1/D)
     Route: 048
  7. CRESTOR [Concomitant]
     Dosage: 10 MG, DAILY (1/D)
     Route: 048
  8. TEKTURNA [Concomitant]
     Dosage: 300 MG, DAILY (1/D)
     Route: 048
  9. VITAMIN E [Concomitant]
     Dosage: 400 U, DAILY (1/D)
     Route: 048
  10. FISH OIL [Concomitant]
     Dosage: UNK, DAILY (1/D)
     Route: 048
  11. GLUCOSAMINE SULFATE [Concomitant]
     Dosage: 500 MG, 2/D
     Route: 048
  12. ASPIRIN [Concomitant]
     Dosage: 81 MG, DAILY (1/D)
     Route: 048
  13. GARLIC [Concomitant]
     Dosage: 325 MG, AS NEEDED
  14. MULTI-VITAMIN [Concomitant]
     Dosage: UNK, DAILY (1/D)

REACTIONS (3)
  - BLOOD GLUCOSE INCREASED [None]
  - CEREBROVASCULAR ACCIDENT [None]
  - DRUG INEFFECTIVE [None]
